FAERS Safety Report 19992464 (Version 1)
Quarter: 2021Q4

REPORT INFORMATION
  Report Type: Spontaneous
  Country: US (occurrence: US)
  Receive Date: 20211025
  Receipt Date: 20211025
  Transmission Date: 20220304
  Serious: No
  Sender: FDA-Public Use
  Company Number: US-GLAXOSMITHKLINE-US2021AMR216472

PATIENT
  Sex: Male
  Weight: 86.18 kg

DRUGS (4)
  1. TRELEGY ELLIPTA [Suspect]
     Active Substance: FLUTICASONE FUROATE\UMECLIDINIUM BROMIDE\VILANTEROL TRIFENATATE
     Indication: Chronic obstructive pulmonary disease
     Dosage: 1 PUFF(S), QD 100MCG/62.5MCG/25MCG
     Dates: start: 2021
  2. CHANTIX [Suspect]
     Active Substance: VARENICLINE TARTRATE
     Indication: Ex-tobacco user
     Dosage: UNK
     Dates: start: 202101, end: 202106
  3. TAMSULOSIN HYDROCHLORIDE [Concomitant]
     Active Substance: TAMSULOSIN HYDROCHLORIDE
     Indication: Prostate cancer
     Dosage: 1 DF, BID
     Route: 048
     Dates: start: 2021
  4. FINASTERIDE [Concomitant]
     Active Substance: FINASTERIDE
     Indication: Prostate cancer
     Dosage: 1 DF, QD
     Route: 048
     Dates: start: 2021

REACTIONS (4)
  - Rash [Not Recovered/Not Resolved]
  - Increased upper airway secretion [Unknown]
  - Productive cough [Not Recovered/Not Resolved]
  - Dysphonia [Unknown]
